FAERS Safety Report 14257900 (Version 1)
Quarter: 2017Q4

REPORT INFORMATION
  Report Type: Spontaneous
  Country: US (occurrence: None)
  Receive Date: 20171206
  Receipt Date: 20171206
  Transmission Date: 20180321
  Serious: Yes (Hospitalization)
  Sender: FDA-Public Use
  Company Number: None

PATIENT
  Age: 46 Year
  Sex: Male

DRUGS (11)
  1. XIFAXAN [Concomitant]
     Active Substance: RIFAXIMIN
  2. NADOLOL. [Concomitant]
     Active Substance: NADOLOL
  3. TRAMADOL. [Concomitant]
     Active Substance: TRAMADOL
  4. MIRTAZAPINE. [Concomitant]
     Active Substance: MIRTAZAPINE
  5. GENERLAC [Concomitant]
     Active Substance: LACTULOSE
  6. MIFTAXA [Concomitant]
  7. ZALEPLON. [Concomitant]
     Active Substance: ZALEPLON
  8. SPRYCEL [Suspect]
     Active Substance: DASATINIB
     Indication: CHRONIC MYELOID LEUKAEMIA
     Route: 048
     Dates: start: 20171107
  9. FOLIC ACID. [Concomitant]
     Active Substance: FOLIC ACID
  10. PANTOPRAZOLE [Concomitant]
     Active Substance: PANTOPRAZOLE
  11. TAMSULOSIN [Concomitant]
     Active Substance: TAMSULOSIN

REACTIONS (1)
  - Drug dose omission [None]

NARRATIVE: CASE EVENT DATE: 20171205
